FAERS Safety Report 7781295-3 (Version None)
Quarter: 2011Q3

REPORT INFORMATION
  Report Type: 
  Country: None (occurrence: None)
  Receive Date: 20110927
  Receipt Date: 20110915
  Transmission Date: 20111222
  Serious: Yes (Other)
  Sender: FDA-Public Use
  Company Number: BE-PFIZER INC-2011228618

PATIENT
  Age: 61 Year
  Sex: Female

DRUGS (7)
  1. INDERAL [Suspect]
     Indication: HYPERTENSION
  2. NICORETTE [Concomitant]
     Dosage: 2 MG, UNK
     Route: 065
     Dates: start: 20030429, end: 20110823
  3. ZOLPIDEM [Concomitant]
     Dosage: 10 MG, 1X/DAY
     Route: 048
     Dates: start: 20110208, end: 20110823
  4. ALENDRONATE SODIUM [Concomitant]
     Dosage: 70 MG WEEK, UNK
     Dates: start: 20060808, end: 20110823
  5. INDERAL [Suspect]
     Indication: TREMOR
     Dosage: 40 MG, 1X/DAY
     Route: 048
     Dates: start: 20110320, end: 20110324
  6. LESCOL [Concomitant]
     Dosage: 40 MG, UNK
     Dates: start: 20041213, end: 20110823
  7. AMLODIPINE BESYLATE [Concomitant]
     Dosage: 5 MG, UNK
     Route: 048
     Dates: start: 20050420, end: 20110823

REACTIONS (4)
  - ORAL MUCOSAL ERYTHEMA [None]
  - OEDEMA MOUTH [None]
  - ORAL PAIN [None]
  - SWOLLEN TONGUE [None]
